FAERS Safety Report 8500615-5 (Version None)
Quarter: 2012Q3

REPORT INFORMATION
  Report Type: 
  Country: None (occurrence: None)
  Receive Date: 20120710
  Receipt Date: 20120703
  Transmission Date: 20120928
  Serious: Yes (Hospitalization)
  Sender: FDA-Public Use
  Company Number: US-FRI-1000029803

PATIENT
  Sex: Male
  Weight: 94.35 kg

DRUGS (19)
  1. METOPROLOL [Concomitant]
     Dosage: 50 MG
     Route: 048
  2. SPIRIVA [Concomitant]
     Dosage: 1 PUFF DAILY
  3. DALIRESP [Suspect]
     Indication: CHRONIC OBSTRUCTIVE PULMONARY DISEASE
     Dosage: 500 MCG
     Route: 048
     Dates: start: 20120211, end: 20120213
  4. HYDROCHLOROTHIAZIDE [Concomitant]
     Dosage: 12.5 MG
     Route: 048
  5. ISOSORBIDE MONONITRATE [Concomitant]
     Route: 048
  6. SINGULAIR [Concomitant]
     Dosage: 10 MG
     Route: 048
  7. PROAIR HFA [Concomitant]
     Indication: DYSPNOEA
     Dosage: 2 PUFFS EVERY FOUR HOURS AS NEEDED
  8. AMLODIPINE [Concomitant]
     Dosage: 10 MG
     Route: 048
  9. CELEXA [Concomitant]
     Dosage: 20 MG
     Route: 048
  10. GEMFIBROZIL [Concomitant]
     Dosage: 1200 MG
     Route: 048
  11. PLAVIX [Concomitant]
     Dosage: 75 MG
     Route: 048
  12. GLIMEPIRIDE [Concomitant]
     Dosage: 10 MG
     Route: 048
  13. ALBUTEROL [Concomitant]
     Indication: DYSPNOEA
     Dosage: 2.5 MG/3ML TWICE DAILY AND EVERY FOUR HOURS AS NEEDED
     Route: 055
  14. NITROGLYCERIN [Concomitant]
     Indication: CHEST PAIN
     Dosage: 0.4 MG EVERY 5 MINUTES TIMES THREE AS NEEDED
     Route: 060
  15. OMEPRAZOLE [Concomitant]
     Dosage: 20 MG
     Route: 048
  16. ASPIRIN [Concomitant]
     Dosage: 325 MG
     Route: 048
  17. ADVAIR DISKUS 100/50 [Concomitant]
     Dosage: 250/50 1 PUFF TWICE DAILY
  18. POTASSIUM CHLORIDE [Concomitant]
     Dosage: 10 MEQ
     Route: 048
  19. AMBIEN [Concomitant]
     Indication: INSOMNIA
     Dosage: 5 MG AS NEEDED
     Route: 048

REACTIONS (4)
  - RENAL FAILURE ACUTE [None]
  - FIBRIN D DIMER INCREASED [None]
  - CHRONIC OBSTRUCTIVE PULMONARY DISEASE [None]
  - CARDIAC FAILURE CONGESTIVE [None]
